FAERS Safety Report 21263532 (Version 1)
Quarter: 2022Q3

REPORT INFORMATION
  Report Type: Spontaneous
  Country: US (occurrence: US)
  Receive Date: 20220829
  Receipt Date: 20220829
  Transmission Date: 20221027
  Serious: No
  Sender: FDA-Public Use
  Company Number: US-NEBO-PC008899

PATIENT
  Age: 28 Year
  Sex: Female

DRUGS (1)
  1. MONOFERRIC [Suspect]
     Active Substance: FERRIC DERISOMALTOSE
     Indication: Product used for unknown indication
     Route: 050
     Dates: start: 20220802, end: 20220802

REACTIONS (2)
  - Fishbane reaction [Unknown]
  - Procedural anxiety [Unknown]

NARRATIVE: CASE EVENT DATE: 20220802
